FAERS Safety Report 17238825 (Version 2)
Quarter: 2020Q2

REPORT INFORMATION
  Report Type: Spontaneous
  Country: US (occurrence: US)
  Receive Date: 20200106
  Receipt Date: 20200410
  Transmission Date: 20200713
  Serious: No
  Sender: FDA-Public Use
  Company Number: US-SA-2020SA000286

PATIENT
  Age: 62 Year
  Sex: Female

DRUGS (2)
  1. DUPIXENT [Suspect]
     Active Substance: DUPILUMAB
     Indication: ASTHMA
     Dosage: 200 MG, QOW
     Route: 058
     Dates: start: 2019
  2. DUPIXENT [Suspect]
     Active Substance: DUPILUMAB
     Dosage: 300 UNK
     Route: 058
     Dates: start: 202002

REACTIONS (5)
  - Dehydration [Unknown]
  - Rash [Unknown]
  - Tremor [Unknown]
  - Blood glucose decreased [Unknown]
  - Neck injury [Unknown]

NARRATIVE: CASE EVENT DATE: 2019
